FAERS Safety Report 4516164-5 (Version None)
Quarter: 2004Q4

REPORT INFORMATION
  Report Type: 
  Country: None (occurrence: None)
  Receive Date: 20041202
  Receipt Date: 20041122
  Transmission Date: 20050328
  Serious: Yes (Life-Threatening, Hospitalization)
  Sender: FDA-Public Use
  Company Number: FR-BRISTOL-MYERS SQUIBB COMPANY-12777173

PATIENT
  Age: 42 Year
  Sex: Male

DRUGS (5)
  1. GLUCOPHAGE [Suspect]
     Route: 048
     Dates: start: 20040916, end: 20041003
  2. COAPROVEL [Suspect]
     Route: 048
     Dates: start: 20040916, end: 20041003
  3. FERVEX [Suspect]
     Dates: start: 20040927
  4. TAHOR [Suspect]
     Route: 048
     Dates: start: 20040916, end: 20041003
  5. ALLOPURINOL [Suspect]
     Route: 048
     Dates: start: 20040916, end: 20041003

REACTIONS (6)
  - DYSPHAGIA [None]
  - PHARYNGITIS [None]
  - SNEEZING [None]
  - STAPHYLOCOCCAL INFECTION [None]
  - TOXIC EPIDERMAL NECROLYSIS [None]
  - TREATMENT NONCOMPLIANCE [None]
